FAERS Safety Report 8702165 (Version 3)
Quarter: 2013Q4

REPORT INFORMATION
  Report Type: Report from Study
  Country: JP (occurrence: JP)
  Receive Date: 20120803
  Receipt Date: 20131101
  Transmission Date: 20140711
  Serious: Yes (Hospitalization)
  Sender: FDA-Public Use
  Company Number: JP-009507513-1207JPN012594

PATIENT
  Age: 68 Year
  Sex: Female
  Weight: 48 kg

DRUGS (11)
  1. PEGINTRON [Suspect]
     Indication: HEPATITIS C
     Dosage: 1.5MCG/KG/WEEK
     Route: 058
     Dates: start: 20120605
  2. REBETOL [Suspect]
     Indication: HEPATITIS C
     Route: 048
     Dates: start: 20120605, end: 20120626
  3. REBETOL [Suspect]
     Route: 048
     Dates: start: 20120627, end: 20120702
  4. REBETOL [Suspect]
     Route: 048
     Dates: start: 20120703
  5. REBETOL [Suspect]
     Indication: HEPATITIS C
     Route: 048
     Dates: start: 20120627, end: 20120702
  6. REBETOL [Suspect]
     Dosage: 200 MG, ONCE
     Route: 048
     Dates: start: 20120703
  7. TELAVIC [Suspect]
     Indication: HEPATITIS C
     Route: 048
     Dates: start: 20120605
  8. LOBU [Concomitant]
     Indication: PROPHYLAXIS
     Dosage: AS NEEDED
     Route: 048
     Dates: start: 20120605
  9. CLARITIN [Concomitant]
     Indication: PROPHYLAXIS
     Route: 048
     Dates: start: 20120610
  10. FERROMIA [Concomitant]
     Indication: PROPHYLAXIS
     Route: 048
     Dates: start: 20120610
  11. POSTERISAN [Concomitant]
     Indication: ANORECTAL DISORDER
     Dosage: Q.S.
     Route: 061
     Dates: start: 20120618

REACTIONS (1)
  - Cerebral haemorrhage [Not Recovered/Not Resolved]
